FAERS Safety Report 9501180 (Version 1)
Quarter: 2013Q1

REPORT INFORMATION
  Report Type: Spontaneous
  Country: US (occurrence: None)
  Receive Date: 20130118
  Receipt Date: 20130118
  Transmission Date: 20140127
  Serious: Yes (Hospitalization)
  Sender: FDA-Public Use
  Company Number: A-NJ2011-58599

PATIENT
  Age: 72 Year
  Sex: Male

DRUGS (2)
  1. TRACLEER [Suspect]
     Indication: PULMONARY ARTERIAL HYPERTENSION
     Route: 048
     Dates: start: 20111215, end: 20111216
  2. ISOSORBIDE (ISOSORBIDE) [Concomitant]

REACTIONS (4)
  - Fluid retention [None]
  - Dyspnoea [None]
  - Oedema peripheral [None]
  - Oedema [None]
